FAERS Safety Report 24938078 (Version 1)
Quarter: 2025Q1

REPORT INFORMATION
  Report Type: Spontaneous
  Country: US (occurrence: None)
  Receive Date: 20250206
  Receipt Date: 20250206
  Transmission Date: 20250409
  Serious: Yes (Other)
  Sender: FDA-CTU
  Company Number: None

PATIENT
  Age: 47 Year
  Sex: Female
  Weight: 72.6 kg

DRUGS (10)
  1. LUMASON [Suspect]
     Active Substance: SULFUR HEXAFLUORIDE
     Indication: Echocardiogram
     Dates: start: 20250128, end: 20250128
  2. Acetaminophen 650mg PO Q6h PRN [Concomitant]
     Dates: start: 20250120, end: 20250129
  3. Carvedilol 12.5mg PO BID [Concomitant]
     Dates: start: 20250125, end: 20250129
  4. Insulin glargine; dose varied during admission [Concomitant]
     Dates: start: 20250121, end: 20250129
  5. Insulin lispro (sliding scale) [Concomitant]
     Dates: start: 20250121, end: 20250129
  6. Levetiracetam 500mg PO BID [Concomitant]
     Dates: start: 20250122, end: 20250129
  7. Losartan 100mg PO daily [Concomitant]
     Dates: start: 20250123, end: 20250129
  8. Nifedipine XL 60mg PO BID [Concomitant]
     Dates: start: 20250127, end: 20250129
  9. Potassium chloride ER 40mg PO x 1 [Concomitant]
     Dates: start: 20250128, end: 20250128
  10. Pregabalin 50mg PO BID [Concomitant]
     Dates: start: 20250126, end: 20250128

REACTIONS (6)
  - Infusion related reaction [None]
  - Cough [None]
  - Erythema [None]
  - Eye movement disorder [None]
  - Cyanosis [None]
  - Flushing [None]

NARRATIVE: CASE EVENT DATE: 20250128
